FAERS Safety Report 10168823 (Version 1)
Quarter: 2014Q2

REPORT INFORMATION
  Report Type: Spontaneous
  Country: LB (occurrence: LB)
  Receive Date: 20140513
  Receipt Date: 20140513
  Transmission Date: 20141212
  Serious: Yes (Other)
  Sender: FDA-Public Use
  Company Number: LB-BAUSCH-BL-2014-002209

PATIENT
  Age: 64 Year
  Sex: Female

DRUGS (1)
  1. ZYLET (LOTEPREDNOL ETABONATE 0.5% AND TOBRAMYCIN 0.3% OPHTHALMIC SUSPE [Suspect]
     Indication: POSTOPERATIVE CARE
     Route: 047
     Dates: start: 20140423

REACTIONS (1)
  - Toxic anterior segment syndrome [Unknown]
